FAERS Safety Report 12874942 (Version 2)
Quarter: 2016Q4

REPORT INFORMATION
  Report Type: Spontaneous
  Country: US (occurrence: US)
  Receive Date: 20161022
  Receipt Date: 20161130
  Transmission Date: 20170207
  Serious: Yes (Hospitalization, Other)
  Sender: FDA-Public Use
  Company Number: US-009507513-1610USA011383

PATIENT
  Age: 66 Year
  Sex: Female
  Weight: 63.5 kg

DRUGS (10)
  1. HEXADROL [Suspect]
     Active Substance: DEXAMETHASONE
     Indication: PROPHYLAXIS OF NAUSEA AND VOMITING
  2. CYCLOPHOSPHAMIDE. [Suspect]
     Active Substance: CYCLOPHOSPHAMIDE
     Indication: CHEMOTHERAPY
  3. TRASTUZUMAB [Suspect]
     Active Substance: TRASTUZUMAB
     Indication: CHEMOTHERAPY
  4. CYCLOPHOSPHAMIDE. [Suspect]
     Active Substance: CYCLOPHOSPHAMIDE
     Indication: BREAST CANCER
     Dosage: UNK, QOW, 4 CYCLES, ^STANDARD DOSING^
  5. TRASTUZUMAB [Suspect]
     Active Substance: TRASTUZUMAB
     Indication: BREAST CANCER
     Dosage: UNK, VARIABLE DOSING (10-50 MG), CYCLICAL, 3 CYCLES OF TRASTUZUMAB (H) AND PACLITAXEL, 1 CYCLE OF H
  6. DOXORUBICIN [Suspect]
     Active Substance: DOXORUBICIN
     Indication: CHEMOTHERAPY
  7. HEXADROL [Suspect]
     Active Substance: DEXAMETHASONE
     Indication: SUPPORTIVE CARE
     Dosage: UNK, ON AVERAGE 3.17 MG/DAY FROM CHEMOTHERAPY START TO THE EVENT
     Route: 048
  8. DOXORUBICIN [Suspect]
     Active Substance: DOXORUBICIN
     Indication: BREAST CANCER
     Dosage: UNK, QOW, 4 CYCLES, ^STANDARD DOSING^
  9. PACLITAXEL. [Suspect]
     Active Substance: PACLITAXEL
     Indication: BREAST CANCER
  10. PACLITAXEL. [Suspect]
     Active Substance: PACLITAXEL
     Indication: CHEMOTHERAPY
     Dosage: UNK, VARIABLE DOSING (10-50 MG), CYCLICAL, 3 CYCLES

REACTIONS (1)
  - Pneumocystis jirovecii pneumonia [Unknown]
